FAERS Safety Report 16695434 (Version 2)
Quarter: 2020Q1

REPORT INFORMATION
  Report Type: Spontaneous
  Country: DE (occurrence: DE)
  Receive Date: 20190813
  Receipt Date: 20200226
  Transmission Date: 20200409
  Serious: Yes (Other)
  Sender: FDA-Public Use
  Company Number: DE-UCBSA-2019025085

PATIENT
  Sex: Female

DRUGS (10)
  1. LACOSAMIDE. [Suspect]
     Active Substance: LACOSAMIDE
     Dosage: 100 MILLIGRAM, 2X/DAY (BID)
     Dates: start: 201811, end: 201811
  2. LORAZEPAM. [Concomitant]
     Active Substance: LORAZEPAM
     Indication: SEIZURE
  3. OXCARBAZEPINE. [Concomitant]
     Active Substance: OXCARBAZEPINE
     Indication: SEIZURE
     Dosage: 600 MILLIGRAM, 2X/DAY (BID)
  4. QUETIAPIN [Concomitant]
     Active Substance: QUETIAPINE
     Indication: SEIZURE
  5. LACOSAMIDE. [Suspect]
     Active Substance: LACOSAMIDE
     Dosage: 300 MILLIGRAM, 2X/DAY (BID)
     Dates: start: 201901
  6. LACOSAMIDE. [Suspect]
     Active Substance: LACOSAMIDE
     Indication: PRODUCT USED FOR UNKNOWN INDICATION
     Dosage: 50 MILLIGRAM, 2X/DAY (BID)
     Dates: start: 201811, end: 201811
  7. ESCITALOPRAM [Concomitant]
     Active Substance: ESCITALOPRAM OXALATE
     Indication: PRODUCT USED FOR UNKNOWN INDICATION
     Dosage: 10 MILLIGRAM PER DAY
     Dates: start: 201901
  8. LACOSAMIDE. [Suspect]
     Active Substance: LACOSAMIDE
     Dosage: 100 MG IN THE MORNING AND 150 MG IN THE EVENING , 2X/DAY (BID)
     Dates: start: 20181120, end: 201811
  9. LACOSAMIDE. [Suspect]
     Active Substance: LACOSAMIDE
     Dosage: 150 MG IN THE MORNING AND 200 MG IN THE EVENING, 2X/DAY (BID)
     Dates: start: 201811
  10. OXCARBAZEPINE. [Concomitant]
     Active Substance: OXCARBAZEPINE
     Dosage: 400 MG - 0 - 450 MG/DAY., 2X/DAY (BID)

REACTIONS (9)
  - Suicidal ideation [Recovering/Resolving]
  - Prescribed overdose [Unknown]
  - Fall [Unknown]
  - Medication error [Unknown]
  - Off label use [Unknown]
  - Seizure [Recovering/Resolving]
  - Retrograde amnesia [Unknown]
  - Petit mal epilepsy [Not Recovered/Not Resolved]
  - Product dose omission [Unknown]

NARRATIVE: CASE EVENT DATE: 2018
